FAERS Safety Report 14300429 (Version 1)
Quarter: 2017Q4

REPORT INFORMATION
  Report Type: Spontaneous
  Country: US (occurrence: US)
  Receive Date: 20171219
  Receipt Date: 20171219
  Transmission Date: 20180321
  Serious: Yes (Hospitalization, Other)
  Sender: FDA-Public Use
  Company Number: US-ARALEZ PHARMACEUTICALS R+D INC.-2017-ARA-002005

PATIENT
  Age: 74 Year
  Sex: Male
  Weight: 102.49 kg

DRUGS (5)
  1. METOPROLOL SUCCINATE. [Suspect]
     Active Substance: METOPROLOL SUCCINATE
     Indication: BLOOD PRESSURE MANAGEMENT
     Dosage: 37.5 MG, BID
  2. COUMADIN [Concomitant]
     Active Substance: WARFARIN SODIUM
     Indication: PRODUCT USED FOR UNKNOWN INDICATION
     Dosage: UNK
     Dates: start: 201707
  3. BRILINTA [Suspect]
     Active Substance: TICAGRELOR
     Dosage: UNK UNK, QD
     Dates: start: 20171207
  4. BRILINTA [Suspect]
     Active Substance: TICAGRELOR
     Indication: STENT PLACEMENT
     Dosage: UNK UNK, QD
     Dates: start: 201311, end: 201411
  5. AMIODARONE                         /00133102/ [Concomitant]
     Active Substance: AMIODARONE
     Indication: ATRIAL FIBRILLATION
     Dosage: UNK
     Dates: start: 201707

REACTIONS (6)
  - Vascular graft [Unknown]
  - Off label use [Unknown]
  - Chest pain [Unknown]
  - Dyspnoea [Unknown]
  - Dyspnoea [Unknown]
  - Fatigue [Unknown]

NARRATIVE: CASE EVENT DATE: 201612
